FAERS Safety Report 7831859-3 (Version None)
Quarter: 2011Q4

REPORT INFORMATION
  Report Type: 
  Country: None (occurrence: None)
  Receive Date: 20111021
  Receipt Date: 20111012
  Transmission Date: 20120403
  Serious: Yes (Other)
  Sender: FDA-Public Use
  Company Number: US-US-EMD SERONO, INC.-7079313

PATIENT
  Sex: Female

DRUGS (1)
  1. REBIF [Suspect]
     Indication: MULTIPLE SCLEROSIS
     Route: 058
     Dates: start: 20090122

REACTIONS (8)
  - PAIN [None]
  - MUSCLE SPASMS [None]
  - PALPITATIONS [None]
  - LIGAMENT RUPTURE [None]
  - HEAD INJURY [None]
  - MENISCUS LESION [None]
  - FALL [None]
  - HEMIPARESIS [None]
